FAERS Safety Report 13014330 (Version 1)
Quarter: 2016Q4

REPORT INFORMATION
  Report Type: Spontaneous
  Country: FR (occurrence: FR)
  Receive Date: 20161209
  Receipt Date: 20161209
  Transmission Date: 20170207
  Serious: Yes (Hospitalization)
  Sender: FDA-Public Use
  Company Number: FR-EMD SERONO-8125050

PATIENT
  Age: 37 Year
  Sex: Female

DRUGS (3)
  1. OVITRELLE [Suspect]
     Active Substance: CHORIOGONADOTROPIN ALFA
     Indication: IN VITRO FERTILISATION
     Dosage: DOSE: 250 MICROGRAMS/0.5 ML
     Route: 058
     Dates: start: 20160817
  2. DECAPEPTYL                         /00486501/ [Suspect]
     Active Substance: GONADORELIN
     Indication: IN VITRO FERTILISATION
     Dosage: POWDER AND SOLVENT FOR SOLUTION FOR INJECTION
     Route: 058
     Dates: start: 201608, end: 201608
  3. FOSTIMON [Suspect]
     Active Substance: UROFOLLITROPIN
     Indication: IN VITRO FERTILISATION
     Route: 058
     Dates: start: 201608, end: 201608

REACTIONS (2)
  - Dyspnoea [Recovered/Resolved]
  - Ovarian hyperstimulation syndrome [Recovered/Resolved]

NARRATIVE: CASE EVENT DATE: 20160819
